FAERS Safety Report 24777839 (Version 1)
Quarter: 2024Q4

REPORT INFORMATION
  Report Type: Spontaneous
  Country: US (occurrence: None)
  Receive Date: 20241225
  Receipt Date: 20241225
  Transmission Date: 20250115
  Serious: No
  Sender: Public
  Company Number: None

PATIENT
  Age: 44 Year
  Sex: Male
  Weight: 83.8 kg

DRUGS (5)
  1. FLUOROURACIL [Suspect]
     Active Substance: FLUOROURACIL
     Dates: end: 20210714
  2. LEUCOVORIN CALCIUM [Suspect]
     Active Substance: LEUCOVORIN CALCIUM
     Dates: end: 20210714
  3. ELOXATIN [Suspect]
     Active Substance: OXALIPLATIN
     Dates: end: 20210714
  4. ATIVAN [Concomitant]
     Active Substance: LORAZEPAM
  5. OMEPRAZOLE [Concomitant]
     Active Substance: OMEPRAZOLE

REACTIONS (2)
  - Neuropathy peripheral [None]
  - Impaired quality of life [None]

NARRATIVE: CASE EVENT DATE: 20210714
